FAERS Safety Report 10441100 (Version 3)
Quarter: 2014Q3

REPORT INFORMATION
  Report Type: Spontaneous
  Country: TR (occurrence: TR)
  Receive Date: 20140909
  Receipt Date: 20140924
  Transmission Date: 20150326
  Serious: Yes (Hospitalization, Other)
  Sender: FDA-Public Use
  Company Number: TR-RANBAXY-2014RR-84805

PATIENT
  Age: 88 Year
  Sex: Female

DRUGS (4)
  1. FLUCONAZOLE. [Suspect]
     Active Substance: FLUCONAZOLE
     Indication: FUNGAEMIA
     Dosage: 100 MG, BID
     Route: 065
  2. MEROPENEM. [Suspect]
     Active Substance: MEROPENEM
     Indication: UROSEPSIS
     Dosage: 2 X 500 MG
     Route: 065
  3. ZYVOXID [Suspect]
     Active Substance: LINEZOLID
     Indication: UROSEPSIS
     Dosage: 1 X 600 MG
     Route: 065
  4. REFLOR [Suspect]
     Active Substance: SACCHAROMYCES CEREVISIAE
     Indication: DIARRHOEA
     Dosage: 250 MG, BID
     Route: 048

REACTIONS (4)
  - Drug ineffective [Recovered/Resolved]
  - Fungaemia [Recovering/Resolving]
  - Thrombocytopenia [Unknown]
  - Diarrhoea [Recovering/Resolving]
